FAERS Safety Report 11869284 (Version 4)
Quarter: 2016Q2

REPORT INFORMATION
  Report Type: Report from Study
  Country: CA (occurrence: CA)
  Receive Date: 20151226
  Receipt Date: 20160414
  Transmission Date: 20160815
  Serious: Yes (Hospitalization, Other)
  Sender: FDA-Public Use
  Company Number: PHHY2015CA168115

PATIENT
  Sex: Female

DRUGS (6)
  1. EXJADE [Suspect]
     Active Substance: DEFERASIROX
     Dosage: 2000 MG, QD
     Route: 048
     Dates: start: 2011
  2. DEXILANT [Concomitant]
     Active Substance: DEXLANSOPRAZOLE
     Indication: PRODUCT USED FOR UNKNOWN INDICATION
     Route: 065
  3. EXJADE [Suspect]
     Active Substance: DEFERASIROX
     Dosage: 2000 MG, QD
     Route: 048
  4. EXJADE [Suspect]
     Active Substance: DEFERASIROX
     Indication: MYELODYSPLASTIC SYNDROME
     Dosage: 3000 MG, QD
     Route: 048
     Dates: start: 201001
  5. EXJADE [Suspect]
     Active Substance: DEFERASIROX
     Dosage: 3000 MG, QD
     Route: 048
     Dates: start: 2015
  6. NEUPOGEN [Concomitant]
     Active Substance: FILGRASTIM
     Indication: PRODUCT USED FOR UNKNOWN INDICATION
     Dosage: 3 TO 5 TIMES/WEEK
     Route: 065

REACTIONS (19)
  - Haemoglobin decreased [Unknown]
  - Inflammation [Unknown]
  - Dyspnoea [Unknown]
  - Diarrhoea [Unknown]
  - Malaise [Unknown]
  - Postoperative hernia [Unknown]
  - Skin exfoliation [Unknown]
  - Fatigue [Unknown]
  - Chromaturia [Unknown]
  - Constipation [Unknown]
  - Haemorrhage [Unknown]
  - Abdominal distension [Unknown]
  - Abdominal discomfort [Unknown]
  - Headache [Unknown]
  - Dry skin [Unknown]
  - White blood cell count decreased [Unknown]
  - Infection [Unknown]
  - Lymphadenopathy [Unknown]
  - Abdominal rigidity [Unknown]
